FAERS Safety Report 12404987 (Version 1)
Quarter: 2016Q2

REPORT INFORMATION
  Report Type: Spontaneous
  Country: US (occurrence: US)
  Receive Date: 20160525
  Receipt Date: 20160525
  Transmission Date: 20160815
  Serious: No
  Sender: FDA-Public Use
  Company Number: US-009507513-1605USA010147

PATIENT
  Age: 17 Year
  Sex: Female
  Weight: 126.8 kg

DRUGS (1)
  1. NEXPLANON [Suspect]
     Active Substance: ETONOGESTREL
     Indication: CONTRACEPTION
     Dosage: 3 YEAR IMPLANT
     Route: 059
     Dates: start: 20151104

REACTIONS (6)
  - Ulcer [Unknown]
  - Anxiety [Unknown]
  - Abdominal discomfort [Unknown]
  - Vomiting [Unknown]
  - Tremor [Unknown]
  - Abdominal pain upper [Unknown]

NARRATIVE: CASE EVENT DATE: 201601
